FAERS Safety Report 6464260-8 (Version None)
Quarter: 2009Q4

REPORT INFORMATION
  Report Type: 
  Country: None (occurrence: None)
  Receive Date: 20091201
  Receipt Date: 20091116
  Transmission Date: 20100525
  Serious: Yes (Hospitalization)
  Sender: FDA-Public Use
  Company Number: RO-PFIZER INC-2009298073

PATIENT
  Age: 23 Year
  Sex: Female

DRUGS (2)
  1. NIFEDIPINE [Suspect]
     Dosage: 300 MG, SINGLE
  2. PARACETAMOL [Suspect]

REACTIONS (21)
  - CHEST DISCOMFORT [None]
  - CYANOSIS [None]
  - CYTOLYTIC HEPATITIS [None]
  - ELECTROCARDIOGRAM ST-T SEGMENT ABNORMAL [None]
  - GASTROINTESTINAL SOUNDS ABNORMAL [None]
  - MENTAL STATUS CHANGES [None]
  - METABOLIC ACIDOSIS [None]
  - NAUSEA [None]
  - OVERDOSE [None]
  - PALLOR [None]
  - PALPITATIONS [None]
  - PANCREATITIS ACUTE [None]
  - PLEURISY [None]
  - RENAL FAILURE [None]
  - RESPIRATORY DISTRESS [None]
  - SEPSIS [None]
  - SHOCK [None]
  - SINUS TACHYCARDIA [None]
  - SUICIDE ATTEMPT [None]
  - TACHYPNOEA [None]
  - TINNITUS [None]
